FAERS Safety Report 6900988-0 (Version None)
Quarter: 2010Q3

REPORT INFORMATION
  Report Type: 
  Country: None (occurrence: None)
  Receive Date: 20100803
  Receipt Date: 20100729
  Transmission Date: 20110219
  Serious: Yes (Life-Threatening)
  Sender: FDA-Public Use
  Company Number: B0667601A

PATIENT
  Age: 84 Year
  Sex: Female

DRUGS (1)
  1. ARIXTRA [Suspect]
     Indication: THROMBOSIS PROPHYLAXIS
     Dosage: 5MG PER DAY
     Route: 058

REACTIONS (4)
  - ANAEMIA [None]
  - DYSFUNCTIONAL UTERINE BLEEDING [None]
  - GASTROINTESTINAL HAEMORRHAGE [None]
  - OVERDOSE [None]
